FAERS Safety Report 12838677 (Version 2)
Quarter: 2016Q4

REPORT INFORMATION
  Report Type: Spontaneous
  Country: US (occurrence: US)
  Receive Date: 20161012
  Receipt Date: 20161014
  Transmission Date: 20170207
  Serious: Yes (Hospitalization, Other)
  Sender: FDA-Public Use
  Company Number: US-TEVA-700390USA

PATIENT
  Sex: Female
  Weight: 67.19 kg

DRUGS (6)
  1. COUMADIN [Concomitant]
     Active Substance: WARFARIN SODIUM
  2. LISINOPRIL. [Suspect]
     Active Substance: LISINOPRIL
     Dosage: 2.5
  3. TORASEMIDE [Suspect]
     Active Substance: TORSEMIDE
     Dosage: 60
  4. SIMVASTATIN. [Concomitant]
     Active Substance: SIMVASTATIN
  5. MECLIZINE [Concomitant]
     Active Substance: MECLIZINE HYDROCHLORIDE
  6. DIGOXIN. [Suspect]
     Active Substance: DIGOXIN
     Dosage: 0.125

REACTIONS (4)
  - Cardiac failure [Unknown]
  - Cardiac amyloidosis [Unknown]
  - Atrial fibrillation [Unknown]
  - Ascites [Unknown]
